FAERS Safety Report 20451078 (Version 1)
Quarter: 2022Q1

REPORT INFORMATION
  Report Type: Spontaneous
  Country: FR (occurrence: FR)
  Receive Date: 20220209
  Receipt Date: 20220209
  Transmission Date: 20220423
  Serious: Yes (Other)
  Sender: FDA-Public Use
  Company Number: FR-TAKEDA-2022TEU001014

PATIENT
  Age: 58 Year
  Sex: Male

DRUGS (3)
  1. COLCHICINE [Interacting]
     Active Substance: COLCHICINE
     Indication: Pericarditis
     Dosage: 4 GRAM, QD
     Route: 065
  2. ASPIRIN [Suspect]
     Active Substance: ASPIRIN
     Indication: Pericarditis
     Dosage: 4 GRAM, QD
     Route: 065
  3. ATORVASTATIN [Interacting]
     Active Substance: ATORVASTATIN
     Indication: Product used for unknown indication
     Dosage: UNK
     Route: 065

REACTIONS (5)
  - Musculoskeletal toxicity [Recovering/Resolving]
  - Drug interaction [Unknown]
  - Overdose [Unknown]
  - Diarrhoea [Unknown]
  - Off label use [Unknown]
